FAERS Safety Report 23190649 (Version 1)
Quarter: 2023Q4

REPORT INFORMATION
  Report Type: Spontaneous
  Country: CA (occurrence: CA)
  Receive Date: 20231116
  Receipt Date: 20231116
  Transmission Date: 20240110
  Serious: Yes (Hospitalization)
  Sender: FDA-Public Use
  Company Number: None

PATIENT
  Age: 82 Year
  Sex: Female
  Weight: 54 kg

DRUGS (4)
  1. ATORVASTATIN [Suspect]
     Active Substance: ATORVASTATIN
     Indication: Prophylaxis
     Dosage: 1 EVERY 1 DAYS
     Route: 048
  2. CLOPIDOGREL [Concomitant]
     Active Substance: CLOPIDOGREL BISULFATE
  3. CRESTOR [Concomitant]
     Active Substance: ROSUVASTATIN CALCIUM
  4. PANTOPRAZOLE [Concomitant]
     Active Substance: PANTOPRAZOLE
     Dosage: POWDER FOR SOLUTION INTRAVENOUS

REACTIONS (11)
  - Blood alkaline phosphatase increased [Recovering/Resolving]
  - Serum ferritin increased [Recovering/Resolving]
  - Abnormal loss of weight [Recovering/Resolving]
  - Alanine aminotransferase increased [Recovering/Resolving]
  - C-reactive protein increased [Recovering/Resolving]
  - Blood bilirubin increased [Recovering/Resolving]
  - Eosinophil count increased [Recovering/Resolving]
  - Aspartate aminotransferase increased [Recovering/Resolving]
  - Decreased appetite [Recovering/Resolving]
  - Jaundice [Recovering/Resolving]
  - Nausea [Recovering/Resolving]
